FAERS Safety Report 14826589 (Version 1)
Quarter: 2018Q2

REPORT INFORMATION
  Report Type: Spontaneous
  Country: GB (occurrence: GB)
  Receive Date: 20180430
  Receipt Date: 20180430
  Transmission Date: 20180711
  Serious: Yes (Other)
  Sender: FDA-Public Use
  Company Number: GB-TEVA-2018-GB-887037

PATIENT
  Age: 18 Year
  Sex: Female
  Weight: 93 kg

DRUGS (3)
  1. PROMETHAZINE HYDROCHLORIDE. [Concomitant]
     Active Substance: PROMETHAZINE HYDROCHLORIDE
     Indication: SLEEP DISORDER
     Dosage: AT NIGHT
     Dates: start: 20180213
  2. SERTRALINE [Suspect]
     Active Substance: SERTRALINE HYDROCHLORIDE
     Route: 065
     Dates: start: 20180213
  3. VARENICLINE [Concomitant]
     Active Substance: VARENICLINE
     Dosage: 2 DOSAGE FORMS DAILY;
     Dates: start: 20180102, end: 20180116

REACTIONS (3)
  - Pharyngeal oedema [Unknown]
  - Joint swelling [Unknown]
  - Hypersensitivity [Recovered/Resolved]

NARRATIVE: CASE EVENT DATE: 20180213
